FAERS Safety Report 16426446 (Version 1)
Quarter: 2019Q2

REPORT INFORMATION
  Report Type: Report from Study
  Country: BR (occurrence: BR)
  Receive Date: 20190613
  Receipt Date: 20190613
  Transmission Date: 20190711
  Serious: Yes (Life-Threatening)
  Sender: FDA-Public Use
  Company Number: PHHY2019BR011059

PATIENT
  Age: 53 Year
  Sex: Female
  Weight: 57 kg

DRUGS (3)
  1. ACLASTA [Suspect]
     Active Substance: ZOLEDRONIC ACID
     Indication: OSTEOPOROSIS
     Dosage: 1 DF, Q12MO
     Route: 042
     Dates: start: 201707
  2. ACLASTA [Suspect]
     Active Substance: ZOLEDRONIC ACID
     Dosage: 1 DF, Q12MO
     Route: 042
     Dates: start: 20190608
  3. ACLASTA [Suspect]
     Active Substance: ZOLEDRONIC ACID
     Dosage: 1 DF, Q12MO
     Route: 042
     Dates: start: 201807

REACTIONS (16)
  - Thyroid disorder [Recovering/Resolving]
  - Abdominal pain upper [Recovered/Resolved]
  - Retching [Unknown]
  - Bone density decreased [Unknown]
  - Decreased appetite [Unknown]
  - Fear of eating [Unknown]
  - Feeding disorder [Unknown]
  - Abdominal discomfort [Unknown]
  - Feeling of body temperature change [Unknown]
  - Thirst decreased [Unknown]
  - Malaise [Unknown]
  - Feeling cold [Unknown]
  - Feeling abnormal [Unknown]
  - Vomiting [Unknown]
  - Hyperhidrosis [Unknown]
  - Defaecation urgency [Unknown]

NARRATIVE: CASE EVENT DATE: 201804
